FAERS Safety Report 18221544 (Version 2)
Quarter: 2021Q1

REPORT INFORMATION
  Report Type: Spontaneous
  Country: US (occurrence: US)
  Receive Date: 20200902
  Receipt Date: 20210205
  Transmission Date: 20210419
  Serious: Yes (Death, Other)
  Sender: FDA-Public Use
  Company Number: US-SA-2020SA233006

PATIENT
  Age: 72 Year
  Sex: Female

DRUGS (2)
  1. ZANTAC [Suspect]
     Active Substance: RANITIDINE HYDROCHLORIDE
     Indication: DYSPEPSIA
     Dosage: UNK, QD
     Dates: start: 198501, end: 201802
  2. ZANTAC [Suspect]
     Active Substance: RANITIDINE HYDROCHLORIDE
     Indication: ABDOMINAL DISCOMFORT

REACTIONS (5)
  - Gastric cancer [Fatal]
  - Bile duct cancer [Fatal]
  - Pancreatic carcinoma [Fatal]
  - Gallbladder cancer [Fatal]
  - Breast cancer [Unknown]

NARRATIVE: CASE EVENT DATE: 19991101
